FAERS Safety Report 6607728-3 (Version None)
Quarter: 2010Q1

REPORT INFORMATION
  Report Type: 
  Country: None (occurrence: None)
  Receive Date: 20100301
  Receipt Date: 20100223
  Transmission Date: 20100710
  Serious: Yes (Hospitalization)
  Sender: FDA-Public Use
  Company Number: US-JNJFOC-20100109931

PATIENT
  Sex: Female
  Weight: 78.02 kg

DRUGS (3)
  1. REMICADE [Suspect]
     Indication: RHEUMATOID ARTHRITIS
     Route: 042
  2. REMICADE [Suspect]
     Dosage: INFUSIONS FOR 6 YEARS
     Route: 042
  3. VICODIN ES [Concomitant]
     Indication: PAIN

REACTIONS (2)
  - CONVULSION [None]
  - INFUSION RELATED REACTION [None]
